FAERS Safety Report 4684547-9 (Version None)
Quarter: 2005Q2

REPORT INFORMATION
  Report Type: 
  Country: None (occurrence: None)
  Receive Date: 20050531
  Receipt Date: 20050330
  Transmission Date: 20051028
  Serious: Yes (Hospitalization)
  Sender: FDA-Public Use
  Company Number: USA050394465

PATIENT
  Age: 1 Day
  Sex: Female

DRUGS (2)
  1. ZYPREXA [Suspect]
  2. EFFEXOR [Concomitant]

REACTIONS (3)
  - DYSKINESIA NEONATAL [None]
  - FEEDING PROBLEM IN NEWBORN [None]
  - HYPOTONIA NEONATAL [None]
